FAERS Safety Report 17983003 (Version 4)
Quarter: 2022Q1

REPORT INFORMATION
  Report Type: Spontaneous
  Country: US (occurrence: US)
  Receive Date: 20200706
  Receipt Date: 20220329
  Transmission Date: 20220423
  Serious: No
  Sender: FDA-Public Use
  Company Number: US-PFIZER INC-2020254890

PATIENT
  Age: 62 Year
  Sex: Female

DRUGS (1)
  1. XELJANZ XR [Suspect]
     Active Substance: TOFACITINIB CITRATE
     Indication: Rheumatoid arthritis
     Dosage: 11 MG, DAILY
     Route: 048
     Dates: start: 20200630

REACTIONS (4)
  - Anxiety [Unknown]
  - Nausea [Recovered/Resolved]
  - Gingival bleeding [Unknown]
  - Swelling [Unknown]

NARRATIVE: CASE EVENT DATE: 20200101
